FAERS Safety Report 4870272-8 (Version None)
Quarter: 2006Q1

REPORT INFORMATION
  Report Type: 
  Country: None (occurrence: None)
  Receive Date: 20060103
  Receipt Date: 20051230
  Transmission Date: 20060701
  Serious: Yes (Hospitalization)
  Sender: FDA-Public Use
  Company Number: US-RB-2508-2005

PATIENT
  Sex: Female
  Weight: 54.48 kg

DRUGS (2)
  1. SUBOXONE [Suspect]
     Route: 060
     Dates: start: 20051129
  2. CLONAZEPAM [Concomitant]
     Route: 048

REACTIONS (3)
  - AMNESIA [None]
  - BACK PAIN [None]
  - DYSARTHRIA [None]
